FAERS Safety Report 12217580 (Version 1)
Quarter: 2016Q1

REPORT INFORMATION
  Report Type: Spontaneous
  Country: US (occurrence: US)
  Receive Date: 20160329
  Receipt Date: 20160329
  Transmission Date: 20160526
  Serious: Yes (Death)
  Sender: FDA-Public Use
  Company Number: US-ROCHE-1732862

PATIENT
  Sex: Female

DRUGS (3)
  1. XALKORI [Concomitant]
     Active Substance: CRIZOTINIB
  2. ZYKADIA [Concomitant]
     Active Substance: CERITINIB
  3. ALECENSA [Suspect]
     Active Substance: ALECTINIB HYDROCHLORIDE
     Indication: PRODUCT USED FOR UNKNOWN INDICATION
     Route: 065

REACTIONS (1)
  - Death [Fatal]
